FAERS Safety Report 21463119 (Version 1)
Quarter: 2022Q4

REPORT INFORMATION
  Report Type: Spontaneous
  Country: US (occurrence: US)
  Receive Date: 20221017
  Receipt Date: 20221017
  Transmission Date: 20230113
  Serious: Yes (Other)
  Sender: FDA-Public Use
  Company Number: US-CHIESI-2022CHF04462

PATIENT
  Sex: Female

DRUGS (2)
  1. FERRIPROX [Suspect]
     Active Substance: DEFERIPRONE
     Indication: Thalassaemia
     Dosage: UNK
     Dates: start: 202205
  2. FERRIPROX [Suspect]
     Active Substance: DEFERIPRONE
     Indication: Blood product transfusion dependent
     Dosage: 85 MILLIGRAM/KILOGRAM, QD
     Dates: start: 202208

REACTIONS (1)
  - Neutrophil count decreased [Unknown]

NARRATIVE: CASE EVENT DATE: 20220825
